FAERS Safety Report 7342172-5 (Version None)
Quarter: 2011Q1

REPORT INFORMATION
  Report Type: 
  Country: None (occurrence: None)
  Receive Date: 20110309
  Receipt Date: 20110307
  Transmission Date: 20110831
  Serious: Yes (Disabling)
  Sender: FDA-Public Use
  Company Number: CA-ASTRAZENECA-2011SE05111

PATIENT
  Age: 43 Year
  Sex: Male
  Weight: 68.9 kg

DRUGS (5)
  1. CRESTOR [Suspect]
     Indication: HYPERCHOLESTEROLAEMIA
     Route: 048
     Dates: start: 20100301
  2. TYLENOL [Concomitant]
     Dosage: UNKNOWN DOSE OCCASSIONAL
  3. CRESTOR [Suspect]
     Route: 048
     Dates: start: 20100901
  4. FLOVENT [Concomitant]
     Dosage: UNKNOWN DOSE AS REQUIRED
  5. SALBUTAMOL [Concomitant]
     Dosage: UNKNOWN DOSE AS REQUIRED

REACTIONS (4)
  - DYSGEUSIA [None]
  - DIZZINESS [None]
  - DISTURBANCE IN ATTENTION [None]
  - NAUSEA [None]
